FAERS Safety Report 5465811-2 (Version None)
Quarter: 2007Q3

REPORT INFORMATION
  Report Type: 
  Country: None (occurrence: None)
  Receive Date: 20070924
  Receipt Date: 20070920
  Transmission Date: 20080115
  Serious: Yes (Hospitalization)
  Sender: FDA-Public Use
  Company Number: JP-BRISTOL-MYERS SQUIBB COMPANY-13915863

PATIENT
  Age: 42 Year
  Sex: Female

DRUGS (3)
  1. FUNGIZONE [Suspect]
     Indication: MENINGITIS CRYPTOCOCCAL
     Dosage: ON 14-AUG-2007 AND 17-AUG-2007 THE DOSE TAKEN WAS 0.5MG/DAY AND ON 21-AUG-2007 THE DOSE WAS 1MG/DAY.
     Route: 029
     Dates: start: 20070824, end: 20070824
  2. AMBISOME [Concomitant]
     Route: 041
     Dates: start: 20070815
  3. DECADRON [Concomitant]
     Dosage: ALSO ON 17-AUG-2007 (DOSE UNKOWN)
     Dates: start: 20070814, end: 20070814

REACTIONS (1)
  - MENINGITIS ASEPTIC [None]
